FAERS Safety Report 11058921 (Version 1)
Quarter: 2015Q2

REPORT INFORMATION
  Report Type: Report from Study
  Country: US (occurrence: None)
  Receive Date: 20150420
  Receipt Date: 20150420
  Transmission Date: 20150821
  Serious: No
  Sender: FDA-Public Use
  Company Number: AEGR001231

PATIENT
  Age: 35 Year
  Sex: Male
  Weight: 95.7 kg

DRUGS (4)
  1. PRAVASTATIN (PRAVASTATIN SODIUM) [Concomitant]
  2. VITAMIN E (TOCOPHERYL ACETATE) [Concomitant]
  3. FISH OIL [Suspect]
     Active Substance: FISH OIL
     Indication: PRODUCT USED FOR UNKNOWN INDICATION
  4. JUXTAPID [Suspect]
     Active Substance: LOMITAPIDE MESYLATE
     Indication: TYPE IIA HYPERLIPIDAEMIA
     Dosage: 5 MG, QD, ORAL
     Route: 048
     Dates: start: 20150227

REACTIONS (5)
  - Flatulence [None]
  - Dyspepsia [None]
  - Abdominal distension [None]
  - Weight decreased [None]
  - Abdominal pain [None]

NARRATIVE: CASE EVENT DATE: 20150308
